FAERS Safety Report 7971969-3 (Version None)
Quarter: 2011Q4

REPORT INFORMATION
  Report Type: 
  Country: None (occurrence: None)
  Receive Date: 20111212
  Receipt Date: 20111205
  Transmission Date: 20120403
  Serious: Yes (Death, Hospitalization)
  Sender: FDA-Public Use
  Company Number: IE-AMGEN-IRLSP2011053982

PATIENT
  Age: 79 Year
  Sex: Female

DRUGS (6)
  1. LEXOTAN [Concomitant]
  2. ARANESP [Suspect]
     Dosage: 500 MUG, Q3WK
     Route: 058
     Dates: start: 20110328
  3. NEXIUM [Concomitant]
  4. MOTILIUM                           /00498201/ [Concomitant]
  5. XYZAL [Concomitant]
  6. ARANESP [Suspect]
     Indication: MYELODYSPLASTIC SYNDROME
     Dosage: 500 MUG, Q2WK
     Route: 058
     Dates: start: 20110401, end: 20111017

REACTIONS (2)
  - ACUTE MYOCARDIAL INFARCTION [None]
  - CARDIAC FAILURE [None]
